FAERS Safety Report 21465252 (Version 2)
Quarter: 2022Q4

REPORT INFORMATION
  Report Type: Spontaneous
  Country: US (occurrence: US)
  Receive Date: 20221017
  Receipt Date: 20221018
  Transmission Date: 20230113
  Serious: No
  Sender: FDA-Public Use
  Company Number: US-PFIZER INC-202201230182

PATIENT
  Age: 50 Year
  Sex: Female
  Weight: 104.33 kg

DRUGS (2)
  1. PAXLOVID [Suspect]
     Active Substance: NIRMATRELVIR\RITONAVIR
     Indication: COVID-19 treatment
     Dosage: 2 DF (ONE RITONAVIR AND ONE NIRMATRELVIR), 2X/DAY (EVERY 12 HOURS FOR 5 DAYS)
     Route: 048
     Dates: start: 20221013
  2. PAXLOVID [Suspect]
     Active Substance: NIRMATRELVIR\RITONAVIR
     Dosage: 3 DF (2 RITONAVIR AND 1 NIRMATRELVIR)

REACTIONS (1)
  - Incorrect dose administered [Unknown]
